FAERS Safety Report 7291668-3 (Version None)
Quarter: 2011Q1

REPORT INFORMATION
  Report Type: 
  Country: None (occurrence: None)
  Receive Date: 20110214
  Receipt Date: 20110209
  Transmission Date: 20110831
  Serious: Yes (Other)
  Sender: FDA-Public Use
  Company Number: US-TEVA-266214USA

PATIENT
  Sex: Male

DRUGS (4)
  1. LEVOTHYROXINE SODIUM [Concomitant]
  2. PEDIASURE [Concomitant]
     Indication: MEDICAL DIET
  3. LANSOPRAZOLE [Suspect]
     Dosage: AT BEDTIME
  4. HYDROXYZINE [Concomitant]

REACTIONS (3)
  - DEVICE OCCLUSION [None]
  - THERAPEUTIC RESPONSE UNEXPECTED WITH DRUG SUBSTITUTION [None]
  - DISCOMFORT [None]
